FAERS Safety Report 13085101 (Version 1)
Quarter: 2017Q1

REPORT INFORMATION
  Report Type: Report from Study
  Country: US (occurrence: US)
  Receive Date: 20170104
  Receipt Date: 20170104
  Transmission Date: 20170428
  Serious: Yes (Hospitalization, Other)
  Sender: FDA-Public Use
  Company Number: US-ARIAD-2016US006900

PATIENT
  Sex: Male

DRUGS (4)
  1. ICLUSIG [Suspect]
     Active Substance: PONATINIB
     Dosage: 45 MG, QD
     Route: 048
  2. ICLUSIG [Suspect]
     Active Substance: PONATINIB
     Indication: CHRONIC MYELOID LEUKAEMIA
     Dosage: 15 MG, QD
     Route: 048
     Dates: start: 20160628
  3. ICLUSIG [Suspect]
     Active Substance: PONATINIB
     Dosage: 45 MG, QD
     Route: 048
  4. ICLUSIG [Suspect]
     Active Substance: PONATINIB
     Dosage: 30 MG, QD
     Route: 048

REACTIONS (18)
  - Stem cell transplant [Unknown]
  - Thrombocytopenia [Unknown]
  - Anaemia [Unknown]
  - Nausea [Unknown]
  - Walking disability [Unknown]
  - Depression [Unknown]
  - Pleural effusion [Unknown]
  - Pulmonary mass [Unknown]
  - Drug intolerance [Unknown]
  - Therapeutic response decreased [Unknown]
  - Fatigue [Not Recovered/Not Resolved]
  - Facial wasting [Unknown]
  - Headache [Unknown]
  - Overweight [Unknown]
  - Neoplasm progression [Unknown]
  - Blast crisis in myelogenous leukaemia [Unknown]
  - Decreased appetite [Unknown]
  - Weight decreased [Unknown]
